FAERS Safety Report 19349401 (Version 1)
Quarter: 2021Q2

REPORT INFORMATION
  Report Type: Spontaneous
  Country: US (occurrence: US)
  Receive Date: 20210530
  Receipt Date: 20210530
  Transmission Date: 20210717
  Serious: No
  Sender: FDA-Public Use
  Company Number: None

PATIENT
  Age: 83 Year
  Sex: Female

DRUGS (3)
  1. FUROSEMIDE. [Suspect]
     Active Substance: FUROSEMIDE
     Indication: OEDEMA
     Route: 048
     Dates: start: 20191015, end: 20210530
  2. ELIQUIS [Concomitant]
     Active Substance: APIXABAN
     Dates: start: 20191029, end: 20210530
  3. METOPROLOL SUCCINATE 25MG ER [Concomitant]
     Dates: start: 20191029, end: 20210530

REACTIONS (2)
  - Product substitution issue [None]
  - Drug ineffective [None]

NARRATIVE: CASE EVENT DATE: 20210502
